FAERS Safety Report 16301954 (Version 2)
Quarter: 2021Q3

REPORT INFORMATION
  Report Type: Spontaneous
  Country: US (occurrence: US)
  Receive Date: 20190512
  Receipt Date: 20210906
  Transmission Date: 20211014
  Serious: Yes (Death, Other)
  Sender: FDA-Public Use
  Company Number: PHEH2019US019860

PATIENT
  Sex: Male

DRUGS (1)
  1. TASIGNA [Suspect]
     Active Substance: NILOTINIB
     Indication: CHRONIC MYELOID LEUKAEMIA
     Dosage: 2 DF, BID
     Route: 048
     Dates: start: 20111128, end: 201412

REACTIONS (41)
  - Cholecystitis acute [Unknown]
  - Injury [Unknown]
  - Coronary artery disease [Unknown]
  - Pollakiuria [Unknown]
  - Arthralgia [Unknown]
  - Joint swelling [Unknown]
  - Death [Fatal]
  - Deafness [Unknown]
  - Polydipsia [Unknown]
  - Eczema [Unknown]
  - Hypophosphataemia [Unknown]
  - Neck pain [Unknown]
  - Anxiety [Unknown]
  - Neuropathy peripheral [Unknown]
  - Leukocytosis [Unknown]
  - Chest pain [Unknown]
  - Nausea [Unknown]
  - Dizziness [Unknown]
  - Hypokalaemia [Unknown]
  - Coronary artery occlusion [Unknown]
  - Hypertension [Unknown]
  - Gastrooesophageal reflux disease [Unknown]
  - Sleep apnoea syndrome [Unknown]
  - Anaemia [Unknown]
  - Cough [Unknown]
  - Pain [Unknown]
  - Cerumen impaction [Unknown]
  - Bladder neck obstruction [Unknown]
  - Chronic obstructive pulmonary disease [Unknown]
  - Dyslipidaemia [Unknown]
  - Hyperlipidaemia [Unknown]
  - Arteriosclerosis [Unknown]
  - Emotional distress [Unknown]
  - Left ventricular failure [Unknown]
  - Type 2 diabetes mellitus [Unknown]
  - Cardiac failure congestive [Unknown]
  - Renal failure [Unknown]
  - Abdominal pain upper [Unknown]
  - Arteriosclerosis coronary artery [Unknown]
  - Depression [Unknown]
  - Increased appetite [Unknown]
